FAERS Safety Report 15036735 (Version 1)
Quarter: 2018Q2

REPORT INFORMATION
  Report Type: Spontaneous
  Country: AU (occurrence: AU)
  Receive Date: 20180620
  Receipt Date: 20180620
  Transmission Date: 20180711
  Serious: Yes (Hospitalization)
  Sender: FDA-Public Use
  Company Number: AU-BAYER-2018-112617

PATIENT
  Age: 29 Year
  Sex: Female
  Weight: 85 kg

DRUGS (1)
  1. GADOVIST [Suspect]
     Active Substance: GADOBUTROL
     Indication: NUCLEAR MAGNETIC RESONANCE IMAGING
     Dosage: 7.5 ML, ONCE
     Route: 042
     Dates: start: 20180611, end: 20180611

REACTIONS (7)
  - Erythema [None]
  - Cold sweat [None]
  - Anaphylactic reaction [None]
  - Oxygen saturation decreased [None]
  - Paraesthesia [None]
  - Blood pressure immeasurable [None]
  - Feeling hot [None]

NARRATIVE: CASE EVENT DATE: 20180611
